FAERS Safety Report 9260115 (Version 2)
Quarter: 2013Q2

REPORT INFORMATION
  Report Type: Spontaneous
  Country: JP (occurrence: JP)
  Receive Date: 20130429
  Receipt Date: 20130610
  Transmission Date: 20140414
  Serious: Yes (Hospitalization)
  Sender: FDA-Public Use
  Company Number: JP-ELI_LILLY_AND_COMPANY-JP201304006551

PATIENT
  Age: 75 Year
  Sex: Male

DRUGS (3)
  1. FORTEO [Suspect]
     Route: 058
  2. FORTEO [Suspect]
     Dosage: UNK
     Route: 058
     Dates: end: 20130529
  3. FORTEO [Suspect]
     Dosage: UNK
     Route: 058
     Dates: start: 20130530

REACTIONS (2)
  - Decreased appetite [Unknown]
  - Asthenia [Unknown]
